FAERS Safety Report 10052845 (Version 1)
Quarter: 2014Q2

REPORT INFORMATION
  Report Type: Spontaneous
  Country: US (occurrence: US)
  Receive Date: 20140402
  Receipt Date: 20140402
  Transmission Date: 20141212
  Serious: No
  Sender: FDA-Public Use
  Company Number: US-TEVA-472070USA

PATIENT
  Sex: Female

DRUGS (9)
  1. AZILECT [Suspect]
     Indication: PARKINSON^S DISEASE
     Dosage: 0.5 MG - 1 MG
  2. PRAMIPEXOLE [Concomitant]
  3. CARBIDOPA W/LEVODOPA [Concomitant]
  4. LIPITOR [Concomitant]
     Indication: DIABETES MELLITUS
  5. METFORMIN [Concomitant]
     Indication: BLOOD PRESSURE
  6. VITAMIN D [Concomitant]
  7. VITAMIN E [Concomitant]
  8. VITAMIN C [Concomitant]
  9. VITAMIN B [Concomitant]

REACTIONS (8)
  - Sleep disorder [Recovering/Resolving]
  - Middle insomnia [Recovering/Resolving]
  - Decreased appetite [Recovering/Resolving]
  - Feeling abnormal [Recovering/Resolving]
  - Tremor [Recovering/Resolving]
  - Somnolence [Recovering/Resolving]
  - Agitation [Recovering/Resolving]
  - Dysarthria [Recovering/Resolving]
